FAERS Safety Report 19658183 (Version 2)
Quarter: 2021Q3

REPORT INFORMATION
  Report Type: Spontaneous
  Country: US (occurrence: US)
  Receive Date: 20210804
  Receipt Date: 20210902
  Transmission Date: 20211014
  Serious: No
  Sender: FDA-Public Use
  Company Number: US-MYLANLABS-2021M1046152

PATIENT
  Sex: Female
  Weight: 86 kg

DRUGS (2)
  1. CLONIDINE TRANSDERMAL SYSTEM [Suspect]
     Active Substance: CLONIDINE
     Indication: CARDIAC DISORDER
     Dosage: 0.3 MILLIGRAM, QD, QW
     Route: 062
     Dates: end: 20210704
  2. FUROSEMIDE. [Concomitant]
     Active Substance: FUROSEMIDE
     Dosage: ONE IN THE MORNING

REACTIONS (13)
  - Lung disorder [Unknown]
  - Balance disorder [Recovering/Resolving]
  - Eye pruritus [Recovering/Resolving]
  - Cough [Recovering/Resolving]
  - Application site pruritus [Recovering/Resolving]
  - Swelling [Recovering/Resolving]
  - Feeling abnormal [Recovering/Resolving]
  - Depression [Recovering/Resolving]
  - Speech disorder [Recovering/Resolving]
  - Cardiac disorder [Unknown]
  - Application site erythema [Recovering/Resolving]
  - Therapeutic product effect incomplete [Unknown]
  - Dyspnoea [Recovering/Resolving]
